FAERS Safety Report 11792352 (Version 1)
Quarter: 2015Q4

REPORT INFORMATION
  Report Type: Spontaneous
  Country: US (occurrence: US)
  Receive Date: 20151202
  Receipt Date: 20151202
  Transmission Date: 20160305
  Serious: No
  Sender: FDA-Public Use
  Company Number: US-SUN PHARMACEUTICAL INDUSTRIES LTD-2015SUN00877

PATIENT

DRUGS (2)
  1. OXCARBAZEPINE TABLETS, 300 MG [Suspect]
     Active Substance: OXCARBAZEPINE
     Dosage: 300 MG, SIX TABLETS DAILY
     Route: 048
     Dates: start: 20150324
  2. OXCARBAZEPINE TABLETS, 300 MG [Suspect]
     Active Substance: OXCARBAZEPINE
     Indication: PARTIAL SEIZURES
     Dosage: 300 MG, 5 TABLET DAILY
     Route: 048

REACTIONS (3)
  - Vaginal infection [Unknown]
  - Intentional product use issue [Unknown]
  - Drug ineffective [Unknown]

NARRATIVE: CASE EVENT DATE: 2014
